FAERS Safety Report 6601416-5 (Version None)
Quarter: 2010Q1

REPORT INFORMATION
  Report Type: 
  Country: None (occurrence: None)
  Receive Date: 20100225
  Receipt Date: 20100223
  Transmission Date: 20100710
  Serious: Yes (Hospitalization)
  Sender: FDA-Public Use
  Company Number: US-B.I. PHARMACEUTICALS,INC./RIDGEFIELD-2010-BP-02234BP

PATIENT
  Sex: Male

DRUGS (6)
  1. SPIRIVA [Suspect]
     Indication: EMPHYSEMA
     Dosage: 18 MCG
     Route: 055
     Dates: start: 20080101, end: 20090401
  2. SPIRIVA [Suspect]
     Indication: CHRONIC OBSTRUCTIVE PULMONARY DISEASE
     Dosage: 18 MCG
     Route: 055
     Dates: start: 20090801
  3. SYNTHROID [Concomitant]
     Indication: HYPOTHYROIDISM
  4. METOPROLOL TARTRATE [Concomitant]
     Indication: HYPERTENSION
  5. AMLODIPINE [Concomitant]
     Indication: HYPERTENSION
  6. ZESTRIL [Concomitant]
     Indication: HYPERTENSION

REACTIONS (3)
  - BLOOD CHOLESTEROL INCREASED [None]
  - FLUID RETENTION [None]
  - MYOCARDIAL INFARCTION [None]
